FAERS Safety Report 7385398-7 (Version None)
Quarter: 2011Q1

REPORT INFORMATION
  Report Type: 
  Country: None (occurrence: None)
  Receive Date: 20110330
  Receipt Date: 20110322
  Transmission Date: 20110831
  Serious: Yes (Hospitalization)
  Sender: FDA-Public Use
  Company Number: US-GILEAD-2011-0036991

PATIENT
  Sex: Female

DRUGS (23)
  1. PERIDEX                            /00016001/ [Concomitant]
  2. BUMEX [Concomitant]
  3. ZYRTEC [Concomitant]
  4. SENNA                              /00142201/ [Concomitant]
  5. DULCOLAX [Concomitant]
  6. ATIVAN [Concomitant]
  7. OXYCODONE [Concomitant]
  8. LETAIRIS [Suspect]
     Indication: PULMONARY HYPERTENSION
     Route: 048
     Dates: start: 20070928, end: 20110319
  9. COLCRYS [Concomitant]
  10. REMERON [Concomitant]
  11. LEVOTHYROXINE SODIUM [Concomitant]
  12. NEXIUM [Concomitant]
  13. KENALOG [Concomitant]
  14. MULTI-VITAMINS [Concomitant]
  15. TRAZODONE HCL [Concomitant]
  16. ASPIRIN [Concomitant]
  17. LETAIRIS [Suspect]
     Indication: CONNECTIVE TISSUE DISORDER
  18. MIRALAX [Concomitant]
  19. TIMOPTIC [Concomitant]
  20. FLONASE [Concomitant]
  21. FLEET                              /00285401 [Concomitant]
  22. DOLOPHINE HCL [Concomitant]
  23. EFFEXOR XR [Concomitant]

REACTIONS (3)
  - OVERDOSE [None]
  - RIGHT VENTRICULAR FAILURE [None]
  - MENTAL STATUS CHANGES [None]
